FAERS Safety Report 21824699 (Version 2)
Quarter: 2023Q1

REPORT INFORMATION
  Report Type: Spontaneous
  Country: US (occurrence: US)
  Receive Date: 20230105
  Receipt Date: 20230126
  Transmission Date: 20230417
  Serious: Yes (Other)
  Sender: FDA-Public Use
  Company Number: US-BAYER-2023P000765

PATIENT
  Age: 41 Year
  Sex: Male

DRUGS (2)
  1. KOGENATE FS [Suspect]
     Active Substance: ANTIHEMOPHILIC FACTOR, HUMAN RECOMBINANT
     Dosage: 2000 TO 2200 UNITS
     Route: 042
  2. EMICIZUMAB [Concomitant]
     Active Substance: EMICIZUMAB

REACTIONS (1)
  - Muscle strain [None]

NARRATIVE: CASE EVENT DATE: 20220101
